FAERS Safety Report 10558447 (Version 3)
Quarter: 2019Q1

REPORT INFORMATION
  Report Type: Spontaneous
  Country: FR (occurrence: FR)
  Receive Date: 20141031
  Receipt Date: 20190115
  Transmission Date: 20190417
  Serious: Yes (Hospitalization, Other)
  Sender: FDA-Public Use
  Company Number: FR-SA-2014SA144562

PATIENT
  Age: 76 Year
  Sex: Male
  Weight: 63 kg

DRUGS (5)
  1. CLOPIDOGREL BISULFATE. [Suspect]
     Active Substance: CLOPIDOGREL BISULFATE
     Indication: PRODUCT USED FOR UNKNOWN INDICATION
     Dosage: 1 DF,QD
     Route: 048
  2. SIMVASTATIN. [Concomitant]
     Active Substance: SIMVASTATIN
     Dosage: 1 DF,UNK
  3. PERINDOPRIL [Concomitant]
     Active Substance: PERINDOPRIL
     Dosage: 1 DF,UNK
  4. BISOCE [Concomitant]
     Active Substance: BISOPROLOL
     Dosage: 1 DF,UNK
  5. ELIQUIS [Interacting]
     Active Substance: APIXABAN
     Indication: CEREBROVASCULAR ACCIDENT PROPHYLAXIS
     Dosage: 5 MG,BID
     Route: 048

REACTIONS (18)
  - Subdural haematoma [Recovered/Resolved]
  - Dermabrasion [Recovering/Resolving]
  - Malaise [Recovering/Resolving]
  - Amnesia [Recovering/Resolving]
  - Palpitations [Recovering/Resolving]
  - Chest pain [Unknown]
  - Cerebrovascular accident [Recovering/Resolving]
  - Balance disorder [Recovered/Resolved]
  - Coma scale abnormal [Recovering/Resolving]
  - Head injury [Unknown]
  - Dizziness [Recovered/Resolved]
  - Subarachnoid haemorrhage [Recovering/Resolving]
  - Drug interaction [Unknown]
  - Musculoskeletal pain [Recovering/Resolving]
  - Fall [Unknown]
  - Haematoma [Recovering/Resolving]
  - Loss of consciousness [Recovered/Resolved]
  - Hot flush [Recovering/Resolving]

NARRATIVE: CASE EVENT DATE: 20140902
